FAERS Safety Report 7301211-8 (Version None)
Quarter: 2011Q1

REPORT INFORMATION
  Report Type: 
  Country: None (occurrence: None)
  Receive Date: 20110218
  Receipt Date: 20110211
  Transmission Date: 20110831
  Serious: Yes (Death, Other)
  Sender: FDA-Public Use
  Company Number: GB-ELI_LILLY_AND_COMPANY-GB201008002975

PATIENT
  Sex: Female
  Weight: 50.7 kg

DRUGS (9)
  1. HIDROCORTIZON [Concomitant]
     Indication: ORTHOSTATIC HYPOTENSION
     Dosage: 300 UG, DAILY (1/D)
  2. LATANOPROST [Concomitant]
     Indication: GLAUCOMA
  3. STRONTIUM RANELATE [Concomitant]
     Dosage: 1 G, UNK
  4. IBUPROFEN [Concomitant]
     Indication: ORTHOSTATIC HYPOTENSION
     Dosage: 400 MG, 2/D
  5. FORTEO [Suspect]
     Indication: OSTEOPOROSIS
     Dosage: 20 UG, UNKNOWN
     Route: 058
     Dates: start: 20091101, end: 20100401
  6. CALCICHEW D3 [Concomitant]
     Indication: OSTEOPOROSIS
     Dosage: UNK, DAILY (1/D)
  7. MIDODRINE HYDROCHLORIDE [Concomitant]
     Indication: ORTHOSTATIC HYPOTENSION
     Dosage: 10 MG, 3/D
  8. AZOPT [Concomitant]
     Indication: GLAUCOMA
  9. RANITIDINE [Concomitant]
     Indication: GASTRIC DISORDER
     Dosage: 150 MG, 2/D

REACTIONS (7)
  - CARDIAC ARREST [None]
  - LOSS OF CONSCIOUSNESS [None]
  - ORTHOSTATIC HYPOTENSION [None]
  - MOBILITY DECREASED [None]
  - AUTONOMIC NEUROPATHY [None]
  - WEIGHT DECREASED [None]
  - FATIGUE [None]
